FAERS Safety Report 21448415 (Version 1)
Quarter: 2022Q4

REPORT INFORMATION
  Report Type: Report from Study
  Country: US (occurrence: US)
  Receive Date: 20221013
  Receipt Date: 20221013
  Transmission Date: 20230113
  Serious: No
  Sender: FDA-Public Use
  Company Number: US-ABBVIE-4151157

PATIENT
  Sex: Male

DRUGS (2)
  1. SKYRIZI [Suspect]
     Active Substance: RISANKIZUMAB-RZAA
     Indication: Psoriasis
     Dosage: WEEK 0, STRENGTH- 150 MILLIGRAM
     Route: 058
     Dates: start: 20220809, end: 20220809
  2. SKYRIZI [Suspect]
     Active Substance: RISANKIZUMAB-RZAA
     Dosage: WEEK 4, STRENGTH- 150 MILLIGRAM
     Route: 058
     Dates: start: 20220906, end: 20220906

REACTIONS (1)
  - Pruritus [Recovering/Resolving]
